FAERS Safety Report 22352660 (Version 2)
Quarter: 2023Q2

REPORT INFORMATION
  Report Type: Report from Study
  Country: US (occurrence: US)
  Receive Date: 20230523
  Receipt Date: 20230526
  Transmission Date: 20230721
  Serious: Yes (Hospitalization)
  Sender: FDA-Public Use
  Company Number: US-ABBVIE-5174055

PATIENT
  Sex: Female

DRUGS (2)
  1. DUOPA [Suspect]
     Active Substance: CARBIDOPA\LEVODOPA
     Indication: Parkinson^s disease
     Dosage: LAST ADMIN DATE 2022
     Route: 050
     Dates: start: 202210
  2. DUOPA [Suspect]
     Active Substance: CARBIDOPA\LEVODOPA
     Dosage: STRENGTH: 4.63-20MG, DOSE : 1 CASSETTE, DAILY, (100ML X 7)
     Route: 050
     Dates: start: 2022

REACTIONS (2)
  - Speech disorder [Unknown]
  - Fall [Unknown]
